FAERS Safety Report 14418936 (Version 5)
Quarter: 2018Q4

REPORT INFORMATION
  Report Type: Report from Study
  Country: US (occurrence: US)
  Receive Date: 20180122
  Receipt Date: 20181001
  Transmission Date: 20190204
  Serious: Yes (Disabling)
  Sender: FDA-Public Use
  Company Number: PHEH2018US002632

PATIENT
  Sex: Male

DRUGS (2)
  1. ILARIS [Suspect]
     Active Substance: CANAKINUMAB
     Indication: STILL^S DISEASE
     Dosage: 300 MG, QMO
     Route: 058
  2. ILARIS [Suspect]
     Active Substance: CANAKINUMAB
     Dosage: 150 MG (EVERY 12 DAYS), UNK
     Route: 058

REACTIONS (16)
  - Oropharyngeal pain [Unknown]
  - Balance disorder [Unknown]
  - Heart rate increased [Unknown]
  - Fatigue [Unknown]
  - Pain [Unknown]
  - Malaise [Unknown]
  - Inappropriate schedule of product administration [Unknown]
  - Lymphadenopathy [Unknown]
  - Laboratory test abnormal [Unknown]
  - Decreased appetite [Unknown]
  - Arthralgia [Unknown]
  - Serum ferritin decreased [Unknown]
  - Nasopharyngitis [Unknown]
  - Cough [Unknown]
  - Nausea [Unknown]
  - Pyrexia [Unknown]
